FAERS Safety Report 8165385-1 (Version None)
Quarter: 2012Q1

REPORT INFORMATION
  Report Type: 
  Country: None (occurrence: None)
  Receive Date: 20120227
  Receipt Date: 20120221
  Transmission Date: 20120608
  Serious: Yes (Life-Threatening, Hospitalization, Other)
  Sender: FDA-Public Use
  Company Number: US-BAYER-201038287NA

PATIENT
  Age: 47 Year
  Sex: Female
  Weight: 77 kg

DRUGS (20)
  1. PROTONIX [Concomitant]
     Dosage: UNK
     Dates: start: 20061021, end: 20070409
  2. LIPITOR [Concomitant]
     Dosage: 20 MG, UNK
     Dates: start: 20070409
  3. YASMIN [Suspect]
     Indication: PRODUCT USED FOR UNKNOWN INDICATION
     Dosage: UNK
     Route: 048
     Dates: start: 20060701, end: 20060801
  4. CYCLOBENZAPRINE [Concomitant]
     Dosage: UNK
     Dates: start: 20071101, end: 20100101
  5. MYTUSSIN [Concomitant]
     Dosage: UNK
     Dates: start: 20060724
  6. TRAMADOL HCL [Concomitant]
  7. AMBIEN [Concomitant]
  8. YAZ [Suspect]
     Indication: PRODUCT USED FOR UNKNOWN INDICATION
     Dosage: UNK
     Route: 048
     Dates: start: 20060601, end: 20090801
  9. NORCO [Concomitant]
  10. PROTONIX [Concomitant]
  11. SIMVASTATIN [Concomitant]
     Dosage: UNK
     Dates: start: 20090701, end: 20110101
  12. OMEPRAZOLE [Concomitant]
     Dosage: 40 MG, UNK
     Dates: start: 20061027
  13. VITAMIN B-12 [Concomitant]
     Dosage: UNK
     Dates: start: 20090101
  14. FERROUS SULFATE TAB [Concomitant]
  15. MECLIZINE [Concomitant]
  16. ROZEREM [Concomitant]
     Dosage: UNK
     Dates: start: 20090828
  17. FORTAMET [Concomitant]
     Dosage: UNK
     Dates: start: 20060914, end: 20070409
  18. CALCIUM [Concomitant]
     Dosage: UNK
     Dates: start: 20090101
  19. LISINOPRIL [Concomitant]
     Dosage: UNK
     Dates: start: 20071106
  20. MULTIVITAMINS WITH MINERALS [MULTIVITAMINS WITH MINERALS] [Concomitant]
     Dosage: UNK
     Dates: start: 20090101

REACTIONS (3)
  - PORTAL VEIN THROMBOSIS [None]
  - PAIN [None]
  - THROMBOSIS [None]
